FAERS Safety Report 21241864 (Version 1)
Quarter: 2022Q3

REPORT INFORMATION
  Report Type: Spontaneous
  Country: US (occurrence: US)
  Receive Date: 20220823
  Receipt Date: 20220823
  Transmission Date: 20221026
  Serious: No
  Sender: FDA-Public Use
  Company Number: US-BAUSCH-BL-2022-020541

PATIENT
  Age: 74 Year
  Sex: Female

DRUGS (2)
  1. ALAWAY [Suspect]
     Active Substance: KETOTIFEN FUMARATE
     Indication: Eye pain
     Dosage: 1 DROP IN BOTH EYES
     Route: 047
     Dates: start: 20220817
  2. ALAWAY [Suspect]
     Active Substance: KETOTIFEN FUMARATE
     Indication: Product use in unapproved indication

REACTIONS (2)
  - Periorbital swelling [Unknown]
  - Product use in unapproved indication [Unknown]
